FAERS Safety Report 12541672 (Version 1)
Quarter: 2016Q3

REPORT INFORMATION
  Report Type: Spontaneous
  Country: US (occurrence: US)
  Receive Date: 20160708
  Receipt Date: 20160708
  Transmission Date: 20161109
  Serious: Yes (Hospitalization, Disabling, Other)
  Sender: FDA-Public Use
  Company Number: US-009507513-1205USA01903

PATIENT
  Sex: Female

DRUGS (5)
  1. FOSAMAX [Suspect]
     Active Substance: ALENDRONATE SODIUM
     Indication: OSTEOPOROSIS
     Dosage: UNK
     Route: 048
     Dates: start: 2001, end: 2004
  2. DILANTIN [Concomitant]
     Active Substance: PHENYTOIN
     Indication: EPILEPSY
     Dosage: UNK
     Route: 048
     Dates: start: 1966
  3. FOSAMAX [Suspect]
     Active Substance: ALENDRONATE SODIUM
     Dosage: UNK
     Route: 048
     Dates: start: 200307, end: 201107
  4. RECLAST [Suspect]
     Active Substance: ZOLEDRONIC ACID
     Indication: OSTEOPOROSIS
     Dosage: UNK
     Route: 065
     Dates: start: 200307, end: 201107
  5. RECLAST [Suspect]
     Active Substance: ZOLEDRONIC ACID
     Dosage: A TOTAL OF 3 INFUSIONS IN 3 YEARS
     Dates: start: 2009, end: 201107

REACTIONS (11)
  - Vitamin B12 deficiency [Unknown]
  - Gastrooesophageal reflux disease [Unknown]
  - Cholecystectomy [Unknown]
  - Femur fracture [Unknown]
  - Menopausal symptoms [Unknown]
  - Pain in extremity [Unknown]
  - Sleep apnoea syndrome [Unknown]
  - Hysterectomy [Unknown]
  - Anaemia postoperative [Unknown]
  - Femur fracture [Not Recovered/Not Resolved]
  - Appendicectomy [Unknown]

NARRATIVE: CASE EVENT DATE: 2003
